FAERS Safety Report 17906267 (Version 1)
Quarter: 2020Q2

REPORT INFORMATION
  Report Type: Report from Study
  Country: PL (occurrence: PL)
  Receive Date: 20200617
  Receipt Date: 20200617
  Transmission Date: 20200714
  Serious: Yes (Other)
  Sender: FDA-Public Use
  Company Number: PL-AMGEN-POLNI2020077912

PATIENT
  Age: 37 Year
  Sex: Male
  Weight: 80 kg

DRUGS (3)
  1. OXALIPLATINUM [Concomitant]
     Active Substance: OXALIPLATIN
     Dosage: UNK
     Dates: start: 20191213, end: 20200308
  2. FLUOROURACILUM [Concomitant]
     Active Substance: FLUOROURACIL
     Dosage: UNK
     Dates: start: 20191113, end: 20200308
  3. PANITUMUMAB [Suspect]
     Active Substance: PANITUMUMAB
     Indication: COLORECTAL CANCER METASTATIC
     Dosage: 486 MILLIGRAM
     Route: 042
     Dates: start: 20191004

REACTIONS (3)
  - Neutropenia [Recovered/Resolved]
  - Rash [Recovered/Resolved]
  - Neutropenia [Recovered/Resolved]

NARRATIVE: CASE EVENT DATE: 20191227
